FAERS Safety Report 17100932 (Version 1)
Quarter: 2019Q4

REPORT INFORMATION
  Report Type: Spontaneous
  Country: US (occurrence: US)
  Receive Date: 20191202
  Receipt Date: 20191202
  Transmission Date: 20200122
  Serious: No
  Sender: FDA-Public Use
  Company Number: US-SA-2019SA329295

PATIENT
  Sex: Female

DRUGS (1)
  1. CORTIZONE 10 [Suspect]
     Active Substance: HYDROCORTISONE
     Indication: MUSCLE SPASMS
     Dosage: UNK
     Route: 065
     Dates: start: 201911

REACTIONS (1)
  - Pigmentation disorder [Unknown]
